FAERS Safety Report 24425856 (Version 1)
Quarter: 2024Q4

REPORT INFORMATION
  Report Type: Spontaneous
  Country: ES (occurrence: ES)
  Receive Date: 20241011
  Receipt Date: 20241011
  Transmission Date: 20250114
  Serious: Yes (Life-Threatening)
  Sender: ROCHE
  Company Number: None

PATIENT
  Age: 68 Year
  Sex: Male
  Weight: 115 kg

DRUGS (22)
  1. RITUXIMAB [Interacting]
     Active Substance: RITUXIMAB
     Indication: Myasthenia gravis
     Dosage: 1.0 G SP
     Route: 042
     Dates: start: 20240703, end: 20240717
  2. AZATHIOPRINE [Interacting]
     Active Substance: AZATHIOPRINE
     Indication: Myasthenia gravis
     Dosage: 1.0 COMP DECOCE
     Route: 048
     Dates: start: 20231007, end: 20240911
  3. EDOXABAN TOSYLATE [Concomitant]
     Active Substance: EDOXABAN TOSYLATE
     Indication: Atrial flutter
     Dosage: 30.0 MG CE
     Route: 048
     Dates: start: 20240710
  4. PREDNISONE [Concomitant]
     Active Substance: PREDNISONE
     Indication: Myasthenia gravis
     Dosage: 5.0 MG DE
     Route: 048
     Dates: start: 20231008
  5. SYNJARDY [Concomitant]
     Active Substance: EMPAGLIFLOZIN\METFORMIN HYDROCHLORIDE
     Dosage: 1.0 COMP DE
     Route: 048
     Dates: start: 20240718
  6. OZEMPIC [Concomitant]
     Active Substance: SEMAGLUTIDE
     Indication: Type 2 diabetes mellitus
     Dosage: 1.0 MG C/7 DIAS
     Route: 058
     Dates: start: 20240830
  7. VENTOLIN [Concomitant]
     Active Substance: ALBUTEROL SULFATE
     Indication: Asthma
     Dosage: 200.0 MCG C/6 HORAS
     Route: 050
     Dates: start: 20091127
  8. CITALOPRAM CINFA [Concomitant]
     Indication: Product used for unknown indication
     Dosage: 30.0 MG C/24 H NOC
     Route: 048
     Dates: start: 20231006
  9. ALPHAGAN P [Concomitant]
     Active Substance: BRIMONIDINE TARTRATE
     Indication: Ocular hypertension
     Dosage: 1.0 GTS C/12 H
     Route: 047
     Dates: start: 20221115
  10. ALZIL PLUS [Concomitant]
     Indication: Type 2 diabetes mellitus
     Dosage: 1.0 COMP CE
     Route: 048
     Dates: start: 20240829
  11. COLCHICINE [Concomitant]
     Active Substance: COLCHICINE
     Indication: Gouty arthritis
     Dosage: 0.5 MG C/24 H
     Route: 048
     Dates: start: 20230209
  12. IRON [Concomitant]
     Active Substance: IRON
     Indication: Iron deficiency anaemia
     Dosage: 600.0 MG C/48 HORAS
     Route: 048
     Dates: start: 20131012
  13. NEBIVOLOL HYDROCHLORIDE [Concomitant]
     Active Substance: NEBIVOLOL HYDROCHLORIDE
     Indication: Cardiac failure
     Dosage: 2.5 MG DE
     Route: 048
     Dates: start: 20091127
  14. CETRAXAL PLUS [Concomitant]
     Indication: Aphasia
     Dosage: 4.0 GTS C/8 HORAS
     Route: 001
     Dates: start: 20240719
  15. SYMBICORT [Concomitant]
     Active Substance: BUDESONIDE\FORMOTEROL FUMARATE DIHYDRATE
     Indication: Obstructive airways disorder
     Dosage: 2.0 PUFF C/12 H
     Route: 050
     Dates: start: 20240321, end: 20240920
  16. FLUTICASONE PROPIONATE [Concomitant]
     Active Substance: FLUTICASONE PROPIONATE
     Indication: Rhinitis
     Dosage: 100.0 MCG C/24 H
     Route: 045
     Dates: start: 20140625
  17. LOSARTAN POTASSIUM [Concomitant]
     Active Substance: LOSARTAN POTASSIUM
     Indication: Cardiac failure
     Dosage: 50.0 MG CE
     Route: 048
     Dates: start: 20091127
  18. LANTUS SOLOSTAR [Concomitant]
     Active Substance: INSULIN GLARGINE
     Indication: Type 2 diabetes mellitus
     Dosage: 30.0 UI C/12 H
     Route: 058
     Dates: start: 20240718
  19. REPAGLINIDE [Concomitant]
     Active Substance: REPAGLINIDE
     Indication: Type 2 diabetes mellitus
     Dosage: 0.5 MG CO
     Route: 048
     Dates: start: 20240829
  20. LANTUS SOLOSTAR [Concomitant]
     Active Substance: INSULIN GLARGINE
     Indication: Type 2 diabetes mellitus
     Dosage: 30.0 UI C/12 H
     Route: 058
     Dates: start: 20240718
  21. ACIDO ALENDRONICO SEMANAL [Concomitant]
     Indication: Gouty arthritis
     Dosage: 70.0 MG C/7 DIAS
     Route: 048
     Dates: start: 20240327
  22. FUROSEMIDE [Concomitant]
     Active Substance: FUROSEMIDE
     Indication: Cardiac failure
     Dosage: 40.0 MG DE
     Route: 048
     Dates: start: 20091127

REACTIONS (2)
  - Drug interaction [Unknown]
  - Pancytopenia [Recovering/Resolving]

NARRATIVE: CASE EVENT DATE: 20240903
